FAERS Safety Report 14969514 (Version 1)
Quarter: 2018Q2

REPORT INFORMATION
  Report Type: Spontaneous
  Country: US (occurrence: US)
  Receive Date: 20180604
  Receipt Date: 20180604
  Transmission Date: 20180711
  Serious: No
  Sender: FDA-Public Use
  Company Number: US-HERITAGE PHARMACEUTICALS-2018HTG00070

PATIENT
  Age: 54 Year
  Sex: Male

DRUGS (2)
  1. BUPROPION HYDROCHLORIDE. [Suspect]
     Active Substance: BUPROPION HYDROCHLORIDE
     Indication: DEPRESSION
     Dosage: 100 MG, 2X/DAY
     Route: 048
     Dates: start: 20180202
  2. BUPROPION HYDROCHLORIDE. [Suspect]
     Active Substance: BUPROPION HYDROCHLORIDE
     Indication: ANXIETY

REACTIONS (5)
  - Diplopia [Unknown]
  - Constipation [Unknown]
  - Panic attack [Recovered/Resolved]
  - Dysgeusia [Unknown]
  - Pyrexia [Unknown]

NARRATIVE: CASE EVENT DATE: 201802
